FAERS Safety Report 13145586 (Version 2)
Quarter: 2017Q1

REPORT INFORMATION
  Report Type: Spontaneous
  Country: US (occurrence: US)
  Receive Date: 20170124
  Receipt Date: 20170127
  Transmission Date: 20170428
  Serious: Yes (Other)
  Sender: FDA-Public Use
  Company Number: US-PFIZER INC-2017029661

PATIENT
  Sex: Female

DRUGS (1)
  1. ESTRING [Suspect]
     Active Substance: ESTRADIOL
     Dosage: UNK
     Dates: end: 201701

REACTIONS (4)
  - Asthenia [Unknown]
  - Feeling abnormal [Not Recovered/Not Resolved]
  - Syncope [Unknown]
  - Dizziness [Unknown]
